FAERS Safety Report 11216270 (Version 1)
Quarter: 2015Q2

REPORT INFORMATION
  Report Type: Spontaneous
  Country: US (occurrence: None)
  Receive Date: 20150623
  Receipt Date: 20150623
  Transmission Date: 20150821
  Serious: No
  Sender: FDA-Public Use
  Company Number: None

PATIENT
  Age: 65 Day
  Sex: Female

DRUGS (1)
  1. CLOTRIMAZOLE 10 MG TROCHE [Suspect]
     Active Substance: CLOTRIMAZOLE
     Indication: ORAL CANDIDIASIS
     Dosage: DISSOLVE
     Route: 048

REACTIONS (1)
  - Tongue haemorrhage [None]

NARRATIVE: CASE EVENT DATE: 20150619
